FAERS Safety Report 13821950 (Version 1)
Quarter: 2017Q3

REPORT INFORMATION
  Report Type: Report from Study
  Country: BR (occurrence: BR)
  Receive Date: 20170801
  Receipt Date: 20170801
  Transmission Date: 20171127
  Serious: Yes (Hospitalization)
  Sender: FDA-Public Use
  Company Number: BR-UCBSA-2017029502

PATIENT
  Age: 46 Year
  Sex: Female
  Weight: 58 kg

DRUGS (6)
  1. CERTOLIZUMAB PEGOL [Suspect]
     Active Substance: CERTOLIZUMAB PEGOL
     Indication: CROHN^S DISEASE
     Dosage: 400 MG, EV 15 DAYS
     Dates: start: 20170606, end: 201707
  2. BUSONID [Concomitant]
     Active Substance: BUDESONIDE
     Indication: RHINITIS
     Dosage: 50 MG, ONCE DAILY (QD)
     Route: 048
  3. PHENERGAN [Concomitant]
     Active Substance: PROMETHAZINE HYDROCHLORIDE
     Indication: HYPERSENSITIVITY
     Dosage: UNK
     Route: 048
     Dates: start: 20170605
  4. CERTOLIZUMAB PEGOL [Suspect]
     Active Substance: CERTOLIZUMAB PEGOL
     Dosage: 400 MG, EV 30 DAYS
     Dates: start: 201707
  5. LORATADINE. [Concomitant]
     Active Substance: LORATADINE
     Indication: MECHANICAL URTICARIA
     Dosage: UNK
     Route: 048
  6. HYDROCORTISONE. [Concomitant]
     Active Substance: HYDROCORTISONE
     Indication: HYPERSENSITIVITY
     Dosage: UNK
     Dates: start: 20170605

REACTIONS (7)
  - Dysphonia [Recovered/Resolved]
  - Skin discolouration [Recovered/Resolved]
  - Loss of consciousness [Unknown]
  - Oropharyngeal pain [Recovered/Resolved]
  - Application site swelling [Recovered/Resolved]
  - Application site reaction [Recovered/Resolved]
  - Menstrual disorder [Unknown]

NARRATIVE: CASE EVENT DATE: 20170606
